FAERS Safety Report 20494309 (Version 1)
Quarter: 2022Q1

REPORT INFORMATION
  Report Type: Spontaneous
  Country: US (occurrence: US)
  Receive Date: 20220221
  Receipt Date: 20220221
  Transmission Date: 20220423
  Serious: No
  Sender: FDA-Public Use
  Company Number: US-SA-SAC20220214001069

PATIENT
  Sex: Female

DRUGS (5)
  1. DUPIXENT [Suspect]
     Active Substance: DUPILUMAB
     Indication: Dermatitis atopic
     Dosage: UNK UNK, 1X
     Route: 058
     Dates: start: 20210428, end: 20210428
  2. DUPIXENT [Suspect]
     Active Substance: DUPILUMAB
     Dosage: 300 MG, QOW
     Route: 058
  3. DOXYCYCLINE [Concomitant]
     Active Substance: DOXYCYCLINE
  4. LISINOPRIL [Concomitant]
     Active Substance: LISINOPRIL
  5. ZINC [Concomitant]
     Active Substance: ZINC

REACTIONS (1)
  - Dermatitis atopic [Unknown]
